FAERS Safety Report 9380967 (Version 2)
Quarter: 2013Q3

REPORT INFORMATION
  Report Type: Report from Study
  Country: FR (occurrence: FR)
  Receive Date: 20130703
  Receipt Date: 20130726
  Transmission Date: 20140515
  Serious: Yes (Hospitalization)
  Sender: FDA-Public Use
  Company Number: FR-ROCHE-636765

PATIENT
  Age: 77 Year
  Sex: Male

DRUGS (9)
  1. RITUXIMAB [Suspect]
     Indication: LYMPHOMA
     Dosage: SIX CYCLES ON 27 SEP 07, 18 OCT 07, 08 NOV 07, ?29 NOV 07, 20 DEC 07 + 10 JAN 08
     Route: 042
     Dates: start: 20070927, end: 20080110
  2. RITUXIMAB [Suspect]
     Dosage: 8 CYCLES MAR 08, 09 MAY 08, 04 JUL 08, 29 AUG 08, 24 OCT 08, 19 DEC 08, 13 FEB 09 + 10 APR 09
     Route: 042
  3. ADRIBLASTINE [Concomitant]
     Dosage: FIRST CYCLE
     Route: 065
     Dates: start: 20070927, end: 20070927
  4. ADRIBLASTINE [Concomitant]
     Dosage: SECOND CYCLE ON 18 OCT 07, 3RD CYCLE ON 08 NOV 07, 4TH CYCLE ON 29 NOV 07, FIFTH CYCLE ON 80 MG
     Route: 065
     Dates: start: 20071018, end: 20071220
  5. ADRIBLASTINE [Concomitant]
     Dosage: SIXTH CYCLE
     Route: 065
  6. ONCOVIN [Concomitant]
     Dosage: FIRST CYCLE ON 27 SEP 07, SECOND CYCLE ON 18 OCT 07, THIRD CYCLE ON 08 NOV 2007
     Route: 065
     Dates: start: 20070927, end: 20071108
  7. ONCOVIN [Concomitant]
     Dosage: FOURTH CYCLE ON 29 NOV 2007, FIFTH CYCLE ON 20 DEC 2007 AND SIXTH CYCLE ON 10 JAN 2008
     Route: 065
     Dates: start: 20071129, end: 20080110
  8. ENDOXAN [Concomitant]
     Dosage: FIRST CYCLE
     Route: 065
     Dates: start: 20070927, end: 20070927
  9. ENDOXAN [Concomitant]
     Dosage: SECOND 18 OCT 07, THIRD ON 08 NOV 2007, FOURTH 29 NOV 2007, FIFTH ON 20 DEC 07, SIXTH ON 10 JAN 2008
     Route: 065
     Dates: start: 20071018, end: 20080110

REACTIONS (2)
  - Pancreatitis acute [Unknown]
  - Drug eruption [Unknown]
